FAERS Safety Report 8607406-5 (Version None)
Quarter: 2012Q3

REPORT INFORMATION
  Report Type: 
  Country: None (occurrence: None)
  Receive Date: 20120821
  Receipt Date: 20120807
  Transmission Date: 20120928
  Serious: Yes (Hospitalization, Other)
  Sender: FDA-Public Use
  Company Number: MX-SANOFI-AVENTIS-2012SA041861

PATIENT
  Age: 62 Year
  Sex: Female
  Weight: 48 kg

DRUGS (5)
  1. MICARDIS HCT [Concomitant]
     Route: 048
     Dates: start: 20070101
  2. LANTUS [Suspect]
     Dosage: 6 IU IN THE MORNING AND 16 IU AT NIGHT
     Route: 058
     Dates: start: 20120501
  3. INSULIN HUMAN [Concomitant]
     Indication: TYPE 2 DIABETES MELLITUS
     Route: 058
     Dates: start: 20111001, end: 20120501
  4. LANTUS [Suspect]
     Indication: TYPE 2 DIABETES MELLITUS
     Dosage: 6 IU IN THE MORNING AND 16 IU AT NIGHT
     Route: 058
     Dates: start: 20040101, end: 20111001
  5. ANTIHYPERTENSIVES [Concomitant]
     Route: 048
     Dates: start: 19880101, end: 20070101

REACTIONS (3)
  - PANCREATIC CARCINOMA [None]
  - HYPERGLYCAEMIA [None]
  - WEIGHT DECREASED [None]
